FAERS Safety Report 24677789 (Version 1)
Quarter: 2024Q4

REPORT INFORMATION
  Report Type: Spontaneous
  Country: CN (occurrence: CN)
  Receive Date: 20241129
  Receipt Date: 20241129
  Transmission Date: 20250114
  Serious: Yes (Hospitalization)
  Sender: EMD SERONO INC
  Company Number: CN-Merck Healthcare KGaA-2024062330

PATIENT
  Age: 79 Year
  Sex: Female
  Weight: 58 kg

DRUGS (2)
  1. GLUCOPHAGE [Suspect]
     Active Substance: METFORMIN HYDROCHLORIDE
     Indication: Diabetes mellitus
     Dates: start: 20210802, end: 20240624
  2. INSULIN LISPRO [Suspect]
     Active Substance: INSULIN LISPRO
     Indication: Diabetes mellitus
     Dates: start: 20210802, end: 20240624

REACTIONS (1)
  - Hypoglycaemic coma [Recovering/Resolving]

NARRATIVE: CASE EVENT DATE: 20240624
